FAERS Safety Report 4295095-2 (Version None)
Quarter: 2004Q1

REPORT INFORMATION
  Report Type: 
  Country: None (occurrence: None)
  Receive Date: 20040216
  Receipt Date: 20040105
  Transmission Date: 20041129
  Serious: Yes (Hospitalization, Other)
  Sender: FDA-Public Use
  Company Number: FR-GLAXOSMITHKLINE-B0319145A

PATIENT
  Age: 39 Year
  Sex: Female

DRUGS (6)
  1. DEROXAT [Suspect]
     Route: 048
     Dates: start: 20030726, end: 20030806
  2. EFFEXOR [Suspect]
     Route: 048
     Dates: start: 20030726, end: 20030806
  3. CLAFORAN [Concomitant]
     Route: 065
     Dates: start: 20030726
  4. OFLOCET [Concomitant]
     Route: 065
     Dates: start: 20030726
  5. AOTAL [Concomitant]
     Indication: ALCOHOLISM
     Route: 048
  6. VITAMINE B1 B6 [Concomitant]
     Route: 065

REACTIONS (8)
  - COMA [None]
  - HYPERPYREXIA [None]
  - PNEUMONIA [None]
  - PSEUDOMONAS INFECTION [None]
  - RHABDOMYOLYSIS [None]
  - THROMBOCYTOPENIA [None]
  - URINARY TRACT INFECTION ENTEROCOCCAL [None]
  - URINARY TRACT INFECTION PSEUDOMONAL [None]
